FAERS Safety Report 18675077 (Version 4)
Quarter: 2021Q2

REPORT INFORMATION
  Report Type: Report from Study
  Country: JP (occurrence: JP)
  Receive Date: 20201229
  Receipt Date: 20210520
  Transmission Date: 20210717
  Serious: Yes (Death, Hospitalization, Other)
  Sender: FDA-Public Use
  Company Number: JP-GLAXOSMITHKLINE-JP2020JPN255912

PATIENT
  Age: 8 Decade
  Sex: Male
  Weight: 62.1 kg

DRUGS (50)
  1. MEPOLIZUMAB [Suspect]
     Active Substance: MEPOLIZUMAB
     Indication: EOSINOPHILIC GRANULOMATOSIS WITH POLYANGIITIS
     Dosage: 300 MG
     Route: 058
     Dates: start: 20190327, end: 20190327
  2. MEPOLIZUMAB [Suspect]
     Active Substance: MEPOLIZUMAB
     Dosage: 300 MG
     Route: 058
     Dates: start: 20190424, end: 20190424
  3. MEPOLIZUMAB [Suspect]
     Active Substance: MEPOLIZUMAB
     Dosage: 300 MG
     Route: 058
     Dates: start: 20191010, end: 20191010
  4. MEPOLIZUMAB [Suspect]
     Active Substance: MEPOLIZUMAB
     Dosage: 300 MG
     Route: 058
     Dates: start: 20200130, end: 20200130
  5. PREDONINE [Suspect]
     Active Substance: PREDNISOLONE
     Dosage: 22.5 MG, 1D
     Dates: start: 20190827, end: 20191002
  6. IMURAN [Suspect]
     Active Substance: AZATHIOPRINE
     Indication: EOSINOPHILIC GRANULOMATOSIS WITH POLYANGIITIS
  7. SYMBICORT [Concomitant]
     Active Substance: BUDESONIDE\FORMOTEROL FUMARATE DIHYDRATE
     Dosage: 1680 ?G, 1D
     Route: 055
     Dates: start: 20190816, end: 20190907
  8. FEBURIC [Concomitant]
     Active Substance: FEBUXOSTAT
     Dosage: 20 MG, QD
     Dates: start: 20190424, end: 20200304
  9. MEPOLIZUMAB [Suspect]
     Active Substance: MEPOLIZUMAB
     Dosage: 300 MG
     Route: 058
     Dates: start: 20191205, end: 20191205
  10. MEPOLIZUMAB [Suspect]
     Active Substance: MEPOLIZUMAB
     Dosage: 300 MG
     Route: 058
     Dates: start: 20200227, end: 20200227
  11. ONON CAPSULES [Concomitant]
  12. SPIRIVA RESPIMAT [Concomitant]
     Active Substance: TIOTROPIUM BROMIDE
     Dosage: UNK
  13. TELEMINSOFT SUPPOSITORIES [Concomitant]
  14. SENNOSIDES TABLET [Concomitant]
     Active Substance: SENNOSIDES
  15. MEPOLIZUMAB [Suspect]
     Active Substance: MEPOLIZUMAB
     Dosage: 300 MG
     Route: 058
     Dates: start: 20190619, end: 20190619
  16. MEPOLIZUMAB [Suspect]
     Active Substance: MEPOLIZUMAB
     Dosage: 300 MG
     Route: 058
     Dates: start: 20200102, end: 20200102
  17. IMURAN [Suspect]
     Active Substance: AZATHIOPRINE
     Indication: EOSINOPHILIC GRANULOMATOSIS WITH POLYANGIITIS
     Dosage: 50 MG
     Dates: start: 20190830, end: 20191127
  18. IMURAN [Suspect]
     Active Substance: AZATHIOPRINE
     Indication: CONDITION AGGRAVATED
  19. DIART TABLET [Suspect]
     Active Substance: AZOSEMIDE
     Dosage: UNK
  20. OLOPATADINE HYDROCHLORIDE TABLETS [Concomitant]
     Active Substance: OLOPATADINE HYDROCHLORIDE
  21. INFLUENZA HA VACCINE [Concomitant]
     Active Substance: INFLUENZA VIRUS VACCINE
     Indication: IMMUNISATION
  22. PRANLUKAST CAPSULE [Concomitant]
  23. FLUNITRAZEPAM TABLETS [Concomitant]
     Active Substance: FLUNITRAZEPAM
     Dosage: UNK
  24. PREDONINE [Suspect]
     Active Substance: PREDNISOLONE
     Dosage: 12.5 MG, 1D
     Dates: start: 20190703, end: 20190826
  25. PREDONINE [Suspect]
     Active Substance: PREDNISOLONE
     Dosage: 20 MG, 1D
     Dates: start: 20191003, end: 20191113
  26. PREDONINE (PREDNISOLONE SODIUM SUCCINATE) [Suspect]
     Active Substance: PREDNISOLONE SODIUM SUCCINATE
     Indication: EOSINOPHILIC GRANULOMATOSIS WITH POLYANGIITIS
     Dosage: 10 MG, SINGLE
     Route: 042
     Dates: start: 20190829, end: 20190829
  27. SYMBICORT [Concomitant]
     Active Substance: BUDESONIDE\FORMOTEROL FUMARATE DIHYDRATE
     Dosage: 840 ?G, 1D
     Route: 055
     Dates: start: 20190523, end: 20190815
  28. TAKECAB TABLETS [Concomitant]
     Active Substance: VONOPRAZAN FUMARATE
  29. BAKTAR COMBINATION TABLETS [Concomitant]
     Active Substance: SULFAMETHOXAZOLE\TRIMETHOPRIM
     Indication: ANTIFUNGAL PROPHYLAXIS
     Dosage: UNK
  30. AMITIZA CAPSULE [Concomitant]
     Dosage: UNK
  31. REBAMIPIDE TABLETS [Concomitant]
  32. MEPOLIZUMAB [Suspect]
     Active Substance: MEPOLIZUMAB
     Dosage: 300 MG
     Route: 058
     Dates: start: 20190911, end: 20190911
  33. MEPOLIZUMAB [Suspect]
     Active Substance: MEPOLIZUMAB
     Dosage: 300 MG
     Route: 058
     Dates: start: 20191107, end: 20191107
  34. SYMBICORT [Concomitant]
     Active Substance: BUDESONIDE\FORMOTEROL FUMARATE DIHYDRATE
     Dosage: 1280 ?G, 1D
     Route: 055
     Dates: end: 20190522
  35. SYMBICORT [Concomitant]
     Active Substance: BUDESONIDE\FORMOTEROL FUMARATE DIHYDRATE
     Dosage: 840 ?G, 1D
     Route: 055
     Dates: start: 20190908, end: 20200226
  36. ENALAPRIL MALEATE TABLETS [Concomitant]
  37. MEPOLIZUMAB [Suspect]
     Active Substance: MEPOLIZUMAB
     Dosage: 300 MG
     Route: 058
     Dates: start: 20190522, end: 20190522
  38. MEPOLIZUMAB [Suspect]
     Active Substance: MEPOLIZUMAB
     Dosage: 300 MG
     Route: 058
     Dates: start: 20190814, end: 20190814
  39. PREDONINE [Suspect]
     Active Substance: PREDNISOLONE
     Indication: EOSINOPHILIC GRANULOMATOSIS WITH POLYANGIITIS
     Dosage: 17.5 MG, QD
  40. PREDONINE [Suspect]
     Active Substance: PREDNISOLONE
     Indication: EOSINOPHILIC GRANULOMATOSIS WITH POLYANGIITIS
     Dosage: 12.5 MG, 1D
     Route: 048
     Dates: end: 20190619
  41. PREDONINE [Suspect]
     Active Substance: PREDNISOLONE
     Indication: CONDITION AGGRAVATED
     Dosage: 10 MG, 1D
     Route: 048
     Dates: start: 20190620, end: 20190702
  42. PREDONINE [Suspect]
     Active Substance: PREDNISOLONE
     Dosage: 22.5 MG, 1D
     Dates: start: 20191114, end: 20200303
  43. SPIRONOLACTONE TABLETS [Suspect]
     Active Substance: SPIRONOLACTONE
     Dosage: UNK
  44. BENZALIN TABLETS [Concomitant]
  45. AZOSEMIDE TABLET [Concomitant]
  46. MEPOLIZUMAB [Suspect]
     Active Substance: MEPOLIZUMAB
     Dosage: 300 MG
     Route: 058
     Dates: start: 20190717, end: 20190717
  47. SENNOSIDES TABLET [Concomitant]
     Active Substance: SENNOSIDES
  48. SILECE TABLET [Concomitant]
  49. BONOTEO TABLETS [Concomitant]
  50. C?CYSTEN [Concomitant]
     Active Substance: CARBOCYSTEINE

REACTIONS (23)
  - Muscular weakness [Not Recovered/Not Resolved]
  - Oedema [Recovered/Resolved]
  - Myelosuppression [Recovered/Resolved]
  - Condition aggravated [Recovered/Resolved]
  - Drug ineffective [Unknown]
  - Eosinophilic granulomatosis with polyangiitis [Recovered/Resolved]
  - Stomatitis [Recovered/Resolved]
  - Hyperglycaemia [Recovered/Resolved]
  - Gastric ulcer [Recovered/Resolved]
  - Eosinophilic granulomatosis with polyangiitis [Fatal]
  - Hypokalaemia [Recovered/Resolved]
  - Hyperglycaemia [Recovered/Resolved]
  - Skin erosion [Not Recovered/Not Resolved]
  - Insomnia [Recovered/Resolved]
  - Oesophageal candidiasis [Not Recovered/Not Resolved]
  - Condition aggravated [Fatal]
  - Condition aggravated [Recovered/Resolved]
  - Nausea [Recovered/Resolved]
  - Asthma [Recovered/Resolved]
  - Peripheral sensory neuropathy [Recovered/Resolved]
  - Condition aggravated [Recovered/Resolved]
  - Cellulitis [Recovered/Resolved]
  - Oesophageal candidiasis [Recovered/Resolved]

NARRATIVE: CASE EVENT DATE: 20190703
